FAERS Safety Report 7015864-5 (Version None)
Quarter: 2010Q3

REPORT INFORMATION
  Report Type: 
  Country: None (occurrence: None)
  Receive Date: 20100927
  Receipt Date: 20090910
  Transmission Date: 20110219
  Serious: No
  Sender: FDA-Public Use
  Company Number: US-ASTRAZENECA-2009SE12535

PATIENT
  Sex: Female

DRUGS (1)
  1. ARIMIDEX [Suspect]
     Indication: BREAST CANCER IN SITU
     Route: 048
     Dates: start: 20090413, end: 20090511

REACTIONS (7)
  - BACK PAIN [None]
  - CARPAL TUNNEL SYNDROME [None]
  - MUSCLE TWITCHING [None]
  - NECK PAIN [None]
  - PAIN IN JAW [None]
  - PARAESTHESIA [None]
  - TREMOR [None]
